FAERS Safety Report 9258655 (Version 1)
Quarter: 2013Q2

REPORT INFORMATION
  Report Type: Spontaneous
  Country: CA (occurrence: CA)
  Receive Date: 20130426
  Receipt Date: 20130426
  Transmission Date: 20140414
  Serious: Yes (Other)
  Sender: FDA-Public Use
  Company Number: CA-009507513-1304CAN014815

PATIENT
  Sex: 0

DRUGS (4)
  1. EMEND IV [Suspect]
     Indication: PRODUCT USED FOR UNKNOWN INDICATION
     Dosage: UNK
     Dates: start: 20130419
  2. EPIRUBICIN HYDROCHLORIDE [Concomitant]
     Indication: METASTATIC GASTRIC CANCER
  3. CISPLATIN [Concomitant]
     Indication: METASTATIC GASTRIC CANCER
  4. CAPECITABINE [Concomitant]
     Indication: METASTATIC GASTRIC CANCER

REACTIONS (3)
  - Dyspnoea [Unknown]
  - Throat tightness [Unknown]
  - Erythema [Unknown]
